FAERS Safety Report 24028989 (Version 2)
Quarter: 2024Q3

REPORT INFORMATION
  Report Type: Report from Study
  Country: US (occurrence: US)
  Receive Date: 20240628
  Receipt Date: 20240704
  Transmission Date: 20241016
  Serious: Yes (Other)
  Sender: PFIZER
  Company Number: US-PFIZER INC-202400201207

PATIENT
  Age: 83 Year
  Sex: Female
  Weight: 61.678 kg

DRUGS (2)
  1. IBRANCE [Suspect]
     Active Substance: PALBOCICLIB
     Dosage: 75 MG TABLET ONCE EVERY OTHER DAY
     Route: 048
     Dates: start: 2020
  2. ARIMIDEX [Suspect]
     Active Substance: ANASTROZOLE
     Dosage: UNK

REACTIONS (2)
  - Jaw disorder [Unknown]
  - Off label use [Unknown]
